FAERS Safety Report 11172256 (Version 2)
Quarter: 2015Q2

REPORT INFORMATION
  Report Type: Spontaneous
  Country: US (occurrence: US)
  Receive Date: 20150608
  Receipt Date: 20150617
  Transmission Date: 20150821
  Serious: No
  Sender: FDA-Public Use
  Company Number: US-TEVA-568638USA

PATIENT
  Sex: Male

DRUGS (1)
  1. COPAXONE [Suspect]
     Active Substance: GLATIRAMER ACETATE
     Indication: MULTIPLE SCLEROSIS
     Dates: start: 20150508

REACTIONS (4)
  - Pharyngitis streptococcal [Not Recovered/Not Resolved]
  - Depression [Unknown]
  - Injection site pain [Unknown]
  - Aphonia [Not Recovered/Not Resolved]
